FAERS Safety Report 21709278 (Version 1)
Quarter: 2022Q4

REPORT INFORMATION
  Report Type: Spontaneous
  Country: IT (occurrence: IT)
  Receive Date: 20221210
  Receipt Date: 20221210
  Transmission Date: 20230112
  Serious: Yes (Other)
  Sender: FDA-Public Use
  Company Number: None

PATIENT
  Age: 51 Year
  Sex: Female

DRUGS (4)
  1. METHOTREXATE [Interacting]
     Active Substance: METHOTREXATE
     Indication: Product used for unknown indication
     Dosage: 10MG
     Dates: start: 2021, end: 202206
  2. LEFLUNOMIDE [Interacting]
     Active Substance: LEFLUNOMIDE
     Indication: Rheumatoid arthritis
     Dates: start: 2021, end: 202206
  3. PREDNISONE ACETATE [Concomitant]
     Active Substance: PREDNISONE ACETATE
     Indication: Rheumatoid arthritis
  4. PLAQUENIL [Concomitant]
     Active Substance: HYDROXYCHLOROQUINE SULFATE
     Indication: Rheumatoid arthritis

REACTIONS (3)
  - Arthralgia [Recovering/Resolving]
  - Rheumatoid arthritis [Recovering/Resolving]
  - Drug interaction [Unknown]

NARRATIVE: CASE EVENT DATE: 20220614
